FAERS Safety Report 9458463 (Version 2)
Quarter: 2013Q4

REPORT INFORMATION
  Report Type: Spontaneous
  Country: GB (occurrence: GB)
  Receive Date: 20130814
  Receipt Date: 20131118
  Transmission Date: 20140711
  Serious: Yes (Other)
  Sender: FDA-Public Use
  Company Number: GB-WATSON-2013-14389

PATIENT
  Age: 57 Year
  Sex: Female

DRUGS (3)
  1. TOPIRAMATE (UNKNOWN) [Suspect]
     Indication: NEURALGIA
     Dosage: 25 MG, BID
     Route: 048
     Dates: start: 20121217, end: 20121227
  2. CO-CODAMOL [Concomitant]
     Indication: NEURALGIA
     Dosage: 8 DF, DAILY (6-8/24 HOURS. STARTED MORE THAN TWO YEARS AGO AND ONGOING) 30/500
     Route: 048
  3. DOSULEPIN [Concomitant]
     Indication: NEURALGIA
     Dosage: 75 MG, DAILY (STARTED GREATER THAN ONE YEAR AGO AND ONGOING)
     Route: 048

REACTIONS (3)
  - Dysarthria [Recovered/Resolved]
  - Speech disorder [Recovered/Resolved]
  - Alexia [Recovered/Resolved]
